FAERS Safety Report 5762453-6 (Version None)
Quarter: 2008Q2

REPORT INFORMATION
  Report Type: 
  Country: None (occurrence: None)
  Receive Date: 20080527
  Receipt Date: 20080114
  Transmission Date: 20081010
  Serious: Yes (Other)
  Sender: FDA-Public Use
  Company Number: 251918

PATIENT
  Age: 53 Year
  Sex: Female
  Weight: 124.7 kg

DRUGS (4)
  1. HERCEPTIN [Suspect]
     Indication: BREAST CANCER
     Dosage: 2 MG/KG, 1/WEEK, INTRAVENOUS ; 6 , Q3W, INTRAVENOUS
     Route: 042
  2. PACLITAXEL [Suspect]
     Indication: BREAST CANCER
  3. SOLU-MEDROL [Concomitant]
  4. BENADRYL [Concomitant]

REACTIONS (3)
  - DYSPNOEA [None]
  - INFUSION RELATED REACTION [None]
  - URTICARIA [None]
